FAERS Safety Report 8158332-X (Version None)
Quarter: 2012Q1

REPORT INFORMATION
  Report Type: 
  Country: None (occurrence: None)
  Receive Date: 20120217
  Receipt Date: 20120202
  Transmission Date: 20120608
  Serious: Yes (Death)
  Sender: FDA-Public Use
  Company Number: 2012020103

PATIENT
  Age: 27 Year
  Sex: Male

DRUGS (4)
  1. METHADONE HCL [Suspect]
  2. ACETAMINOPHEN AND OXYCODONE HCL [Suspect]
  3. CARISOPRODOL [Suspect]
  4. ALPRAZOLAM [Suspect]

REACTIONS (3)
  - RESPIRATORY ARREST [None]
  - INCORRECT DOSE ADMINISTERED [None]
  - CARDIAC ARREST [None]
